FAERS Safety Report 13783290 (Version 2)
Quarter: 2017Q4

REPORT INFORMATION
  Report Type: Spontaneous
  Country: GB (occurrence: GB)
  Receive Date: 20170724
  Receipt Date: 20171012
  Transmission Date: 20180320
  Serious: Yes (Other)
  Sender: FDA-Public Use
  Company Number: GB-PFIZER INC-2017312958

PATIENT
  Age: 78 Year
  Sex: Male
  Weight: 61 kg

DRUGS (20)
  1. ACICLOVIR ABBOT [Concomitant]
     Dosage: 5 DF, 1X/DAY
     Dates: start: 20170601, end: 20170605
  2. AMOXICILLIN. [Concomitant]
     Active Substance: AMOXICILLIN
     Dosage: 1 DF, 3X/DAY
     Dates: start: 20170601, end: 20170630
  3. EKLIRA GENUAIR [Concomitant]
     Active Substance: ACLIDINIUM BROMIDE
     Dosage: 1 DF, 2X/DAY
     Route: 055
     Dates: start: 20170621
  4. MEROPENEM. [Suspect]
     Active Substance: MEROPENEM
     Dosage: UNK
     Route: 042
     Dates: start: 20170706
  5. CITALOPRAM [Concomitant]
     Active Substance: CITALOPRAM HYDROBROMIDE
     Dosage: 1 DF, 1X/DAY(USE AS DIRECTED)
     Dates: start: 20151209
  6. DOXYCYCLINE. [Concomitant]
     Active Substance: DOXYCYCLINE
     Dosage: 1 DF, 2X/DAY
     Dates: start: 20151209, end: 20160105
  7. TRIMETHOPRIM. [Concomitant]
     Active Substance: TRIMETHOPRIM
     Dosage: 1 DF, 2X/DAY
     Dates: start: 20151209
  8. CARBOCYSTEINE [Concomitant]
     Active Substance: CARBOCYSTEINE
     Dosage: 2 DF, 3X/DAY
     Dates: start: 20151209
  9. SALBUTAMOL [Concomitant]
     Active Substance: ALBUTEROL
     Dosage: 2 DF, AS NEEDED
     Route: 055
     Dates: start: 20151209
  10. TIOTROPIUM [Concomitant]
     Active Substance: TIOTROPIUM
     Dosage: 1 DF, 1X/DAY
     Route: 055
     Dates: start: 20151209
  11. CO-AMOXICLAV /00756801/ [Concomitant]
     Active Substance: AMOXICILLIN\CLAVULANIC ACID
     Dosage: 1 DF, 3X/DAY
     Dates: start: 20151209
  12. COMBIVENT [Concomitant]
     Active Substance: ALBUTEROL SULFATE\IPRATROPIUM BROMIDE
     Dosage: 1 DF, 2X/DAY
     Route: 055
     Dates: start: 20151209
  13. ENSURE [Concomitant]
     Active Substance: AMINO ACIDS\DEXTROSE\ELECTROLYTES NOS\SOYBEAN OIL\VITAMINS
     Dosage: 2 DF, 1X/DAY
     Dates: start: 20151209
  14. UNIPHYLLIN [Concomitant]
     Active Substance: THEOPHYLLINE ANHYDROUS
     Dosage: 0.5 DF, 2X/DAY (FOR 4-6 WEEKS)
     Dates: start: 20151209
  15. FLUTICASONE. [Concomitant]
     Active Substance: FLUTICASONE
     Dosage: 1 DF, 2X/DAY
     Route: 055
     Dates: start: 20151209
  16. LIDOCAINE. [Concomitant]
     Active Substance: LIDOCAINE
     Indication: HERPES ZOSTER
     Dosage: 1 DF, 3X/DAY
     Dates: start: 20170601, end: 20170602
  17. NERISONE [Concomitant]
     Active Substance: DIFLUCORTOLONE VALERATE
     Dosage: 1 DF, AS NEEDED (4 TIMES A DAY)
     Dates: start: 20151209
  18. SODIUM CHLORIDE. [Concomitant]
     Active Substance: SODIUM CHLORIDE
     Dosage: 1 DF, UNK
     Route: 055
     Dates: start: 20151209
  19. ALLOPURINOL. [Concomitant]
     Active Substance: ALLOPURINOL
     Dosage: 1 DF, 1X/DAY
     Dates: start: 20160317
  20. COLOMYCIN /00013203/ [Concomitant]
     Active Substance: COLISTIN
     Dosage: 2 DF, 2X/DAY
     Dates: start: 20151209

REACTIONS (1)
  - Blister [Recovered/Resolved]

NARRATIVE: CASE EVENT DATE: 20170706
